FAERS Safety Report 15237943 (Version 5)
Quarter: 2018Q3

REPORT INFORMATION
  Report Type: Spontaneous
  Country: US (occurrence: US)
  Receive Date: 20180803
  Receipt Date: 20180821
  Transmission Date: 20181010
  Serious: Yes (Hospitalization)
  Sender: FDA-Public Use
  Company Number: US-UNITED THERAPEUTICS-UNT-2018-011470

PATIENT
  Age: 82 Year
  Sex: Female
  Weight: 51.25 kg

DRUGS (3)
  1. AMLODIPINE [Concomitant]
     Active Substance: AMLODIPINE BESYLATE
     Indication: PRODUCT USED FOR UNKNOWN INDICATION
     Route: 065
  2. REMODULIN [Suspect]
     Active Substance: TREPROSTINIL
     Indication: PULMONARY HYPERTENSION
     Dosage: 0.034 ?G/KG, CONTINUING
     Route: 058
     Dates: start: 20180402
  3. WARFARIN [Concomitant]
     Active Substance: WARFARIN
     Indication: PRODUCT USED FOR UNKNOWN INDICATION
     Route: 065

REACTIONS (8)
  - Vomiting [Unknown]
  - Weight decreased [Unknown]
  - Diarrhoea [Unknown]
  - Dehydration [Unknown]
  - Asthenia [Unknown]
  - Dyspnoea [Unknown]
  - Nausea [Unknown]
  - Dizziness [Unknown]

NARRATIVE: CASE EVENT DATE: 20180721
